FAERS Safety Report 9766832 (Version 1)
Quarter: 2013Q4

REPORT INFORMATION
  Report Type: Spontaneous
  Country: US (occurrence: None)
  Receive Date: 20131216
  Receipt Date: 20131216
  Transmission Date: 20140711
  Serious: Yes (Death, Other)
  Sender: FDA-Public Use
  Company Number: None

PATIENT
  Sex: Female

DRUGS (2)
  1. POMALYST [Suspect]
     Dosage: 1 CAP DAILY DAY 1-21 ORAL
     Dates: start: 20131121
  2. TACROLIMUS [Suspect]

REACTIONS (3)
  - Disease progression [None]
  - Death [None]
  - Unevaluable event [None]
